FAERS Safety Report 5961624-3 (Version None)
Quarter: 2008Q4

REPORT INFORMATION
  Report Type: 
  Country: None (occurrence: None)
  Receive Date: 20081121
  Receipt Date: 20081110
  Transmission Date: 20090506
  Serious: Yes (Hospitalization)
  Sender: FDA-Public Use
  Company Number: JP-WATSON-2008-06647

PATIENT
  Age: 77 Year
  Sex: Male

DRUGS (2)
  1. IRINOTECAN HYDROCHLORIDE [Suspect]
     Indication: COLON CANCER
     Dosage: 130 MG/M2, UNK
  2. FLUOROURACIL [Suspect]
     Indication: COLON CANCER
     Dosage: 200 MG/M2, UNK
     Route: 042

REACTIONS (1)
  - CYTOMEGALOVIRUS COLITIS [None]
